FAERS Safety Report 18712501 (Version 1)
Quarter: 2021Q1

REPORT INFORMATION
  Report Type: Spontaneous
  Country: US (occurrence: US)
  Receive Date: 20210107
  Receipt Date: 20210107
  Transmission Date: 20210419
  Serious: Yes (Hospitalization)
  Sender: FDA-Public Use
  Company Number: None

PATIENT
  Age: 79 Year
  Sex: Male
  Weight: 80 kg

DRUGS (3)
  1. SODIUM CHLORIDE 0.9% 1L BOLUS [Concomitant]
     Dates: start: 20201222, end: 20201222
  2. ACETAMINOPHEN 1000MG TABLET [Concomitant]
     Dates: start: 20201222, end: 20201222
  3. BAMLANIVIMAB. [Suspect]
     Active Substance: BAMLANIVIMAB
     Indication: COVID-19
     Dosage: ?          OTHER FREQUENCY:ONCE;?
     Route: 042
     Dates: start: 20201222, end: 20201222

REACTIONS (3)
  - Confusional state [None]
  - Gait inability [None]
  - Balance disorder [None]

NARRATIVE: CASE EVENT DATE: 20201222
